FAERS Safety Report 16597271 (Version 2)
Quarter: 2019Q3

REPORT INFORMATION
  Report Type: Spontaneous
  Country: JP (occurrence: JP)
  Receive Date: 20190719
  Receipt Date: 20190729
  Transmission Date: 20191004
  Serious: Yes (Other)
  Sender: FDA-Public Use
  Company Number: JP-CELGENEUS-JPN-20190706084

PATIENT
  Age: 72 Year
  Sex: Female
  Weight: 43.1 kg

DRUGS (12)
  1. PACLITAXEL. [Suspect]
     Active Substance: PACLITAXEL
     Indication: METASTASES TO PERITONEUM
  2. RAMUCIRUMAB [Concomitant]
     Active Substance: RAMUCIRUMAB
     Indication: METASTASES TO LIVER
     Dosage: 250 MILLIGRAM
     Route: 041
     Dates: start: 20180416, end: 20190218
  3. ABRAXANE [Suspect]
     Active Substance: PACLITAXEL
     Indication: METASTATIC GASTRIC CANCER
     Dosage: 139 MILLIGRAM
     Route: 041
     Dates: start: 20190405, end: 20190412
  4. PACLITAXEL. [Suspect]
     Active Substance: PACLITAXEL
     Indication: METASTASES TO LIVER
     Dosage: 80 MILLIGRAM
     Route: 065
     Dates: start: 20180219, end: 20180604
  5. ABRAXANE [Suspect]
     Active Substance: PACLITAXEL
     Indication: METASTASES TO LIVER
     Dosage: 110 MILLIGRAM
     Route: 041
     Dates: start: 20190506
  6. ABRAXANE [Suspect]
     Active Substance: PACLITAXEL
     Indication: METASTASES TO LYMPH NODES
     Dosage: 110 MILLIGRAM
     Route: 041
     Dates: start: 20190617
  7. RAMUCIRUMAB [Concomitant]
     Active Substance: RAMUCIRUMAB
     Indication: METASTASES TO PERITONEUM
  8. PACLITAXEL. [Suspect]
     Active Substance: PACLITAXEL
     Indication: METASTASES TO LYMPH NODES
     Dosage: 70 MILLIGRAM
     Route: 065
     Dates: start: 20180618, end: 20190225
  9. RAMUCIRUMAB [Concomitant]
     Active Substance: RAMUCIRUMAB
     Indication: METASTATIC GASTRIC CANCER
     Dosage: 350 MILLIGRAM
     Route: 041
     Dates: start: 20171023, end: 20180402
  10. ABRAXANE [Suspect]
     Active Substance: PACLITAXEL
     Indication: METASTASES TO PERITONEUM
  11. PACLITAXEL. [Suspect]
     Active Substance: PACLITAXEL
     Indication: METASTATIC GASTRIC CANCER
     Dosage: 90 MILLIGRAM
     Route: 065
     Dates: start: 20171023, end: 20180122
  12. RAMUCIRUMAB [Concomitant]
     Active Substance: RAMUCIRUMAB
     Indication: METASTASES TO LYMPH NODES
     Dosage: 350 MILLIGRAM
     Route: 041
     Dates: start: 20190405, end: 20190704

REACTIONS (1)
  - Macular oedema [Not Recovered/Not Resolved]

NARRATIVE: CASE EVENT DATE: 20190613
